FAERS Safety Report 14187187 (Version 1)
Quarter: 2017Q4

REPORT INFORMATION
  Report Type: Spontaneous
  Country: FR (occurrence: FR)
  Receive Date: 20171114
  Receipt Date: 20171114
  Transmission Date: 20180321
  Serious: Yes (Hospitalization)
  Sender: FDA-Public Use
  Company Number: FR-ASTRAZENECA-2017SF13998

PATIENT
  Age: 25397 Day
  Sex: Male

DRUGS (9)
  1. FLECAINE [Concomitant]
     Active Substance: FLECAINIDE
     Dosage: 150 MG MORNING
     Route: 065
  2. CERNEVIT [Concomitant]
     Active Substance: VITAMINS
     Indication: PARENTERAL NUTRITION
     Dosage: 1 BOTTLE
  3. PANTOPRAZOLE [Suspect]
     Active Substance: PANTOPRAZOLE
     Indication: PROPHYLAXIS AGAINST GASTROINTESTINAL ULCER
     Route: 048
     Dates: start: 20170708, end: 20170818
  4. IMIPENEM [Concomitant]
     Active Substance: IMIPENEM
     Route: 042
     Dates: start: 20170715, end: 20170828
  5. BRICANYL [Concomitant]
     Active Substance: TERBUTALINE SULFATE
     Dosage: THREE DOSAGE FORMS; MORNING, NOON, EVENING
  6. INEXIUM [Suspect]
     Active Substance: ESOMEPRAZOLE
     Indication: PROPHYLAXIS AGAINST GASTROINTESTINAL ULCER
     Route: 048
     Dates: start: 20170818, end: 20170918
  7. PRIMPERAN [Concomitant]
     Active Substance: METOCLOPRAMIDE HYDROCHLORIDE
     Dosage: AS NEEDED
  8. ALPRAZOLAM. [Concomitant]
     Active Substance: ALPRAZOLAM
     Dosage: AS NEEDED
  9. DECAN [Concomitant]
     Active Substance: DEXAMETHASONE
     Indication: PARENTERAL NUTRITION
     Dosage: 40 ML

REACTIONS (1)
  - Acute kidney injury [Not Recovered/Not Resolved]

NARRATIVE: CASE EVENT DATE: 20170915
